FAERS Safety Report 11860755 (Version 7)
Quarter: 2016Q2

REPORT INFORMATION
  Report Type: Spontaneous
  Country: JP (occurrence: JP)
  Receive Date: 20151222
  Receipt Date: 20160526
  Transmission Date: 20160815
  Serious: Yes (Other)
  Sender: FDA-Public Use
  Company Number: PHJP2015JP023174

PATIENT
  Age: 59 Year
  Sex: Female

DRUGS (5)
  1. FEMARA [Interacting]
     Active Substance: LETROZOLE
     Indication: BREAST CANCER
  2. TS-1 [Concomitant]
     Active Substance: GIMERACIL\OTERACIL\TEGAFUR
     Indication: GASTRIC CANCER
     Dosage: 120 MG, QD
     Route: 065
  3. PACLITAXEL. [Interacting]
     Active Substance: PACLITAXEL
     Dosage: 160 MG, QD
     Route: 065
  4. FEMARA [Interacting]
     Active Substance: LETROZOLE
     Indication: BREAST CANCER
     Dosage: 2.5 MG, QD
     Route: 048
     Dates: start: 2008
  5. PACLITAXEL. [Suspect]
     Active Substance: PACLITAXEL
     Indication: GASTRIC CANCER
     Dosage: 190 MG, QD
     Route: 065

REACTIONS (5)
  - Drug interaction [Unknown]
  - Bone marrow failure [Recovered/Resolved]
  - White blood cell count decreased [Recovered/Resolved]
  - Neutrophil count decreased [Recovered/Resolved]
  - Platelet count decreased [Recovered/Resolved]
